FAERS Safety Report 9608792 (Version 1)
Quarter: 2013Q4

REPORT INFORMATION
  Report Type: Spontaneous
  Country: US (occurrence: None)
  Receive Date: 20131007
  Receipt Date: 20131007
  Transmission Date: 20140711
  Serious: No
  Sender: FDA-Public Use
  Company Number: None

PATIENT
  Age: 59 Year
  Sex: Male
  Weight: 58.97 kg

DRUGS (5)
  1. AMLODIPINE [Suspect]
     Indication: HYPERTENSION
     Dosage: 1 PILL, QD, ORAL
     Route: 048
  2. NORCO [Concomitant]
  3. VOLTARENGEL [Concomitant]
  4. LISINOPRIL [Concomitant]
  5. NEURONTIN [Concomitant]

REACTIONS (1)
  - Drug ineffective [None]
